FAERS Safety Report 9691472 (Version 1)
Quarter: 2013Q4

REPORT INFORMATION
  Report Type: Spontaneous
  Country: US (occurrence: US)
  Receive Date: 20131115
  Receipt Date: 20131115
  Transmission Date: 20140711
  Serious: Yes (Other)
  Sender: FDA-Public Use
  Company Number: US-MYLANLABS-2013S1025210

PATIENT
  Sex: Female

DRUGS (7)
  1. ALENDRONATE SODIUM [Suspect]
     Route: 048
     Dates: start: 2004, end: 2011
  2. FOSAMAX [Suspect]
     Route: 048
     Dates: start: 2004, end: 2011
  3. BONIVA [Suspect]
     Route: 048
     Dates: start: 2004, end: 2011
  4. IBANDRONATE SODIUM [Suspect]
     Route: 048
     Dates: start: 2004, end: 2011
  5. RECLAST [Suspect]
     Route: 048
     Dates: start: 2004, end: 2011
  6. ZOMETA [Suspect]
     Route: 048
     Dates: start: 2004, end: 2011
  7. ZOLEDRONIC ACID [Suspect]
     Route: 048
     Dates: start: 2004, end: 2011

REACTIONS (2)
  - Femur fracture [Not Recovered/Not Resolved]
  - Bone disorder [Not Recovered/Not Resolved]
